FAERS Safety Report 14245564 (Version 1)
Quarter: 2017Q4

REPORT INFORMATION
  Report Type: Spontaneous
  Country: CA (occurrence: CA)
  Receive Date: 20171203
  Receipt Date: 20171203
  Transmission Date: 20180321
  Serious: Yes (Other)
  Sender: FDA-Public Use
  Company Number: CA-009507513-2009-196084-NL

PATIENT
  Age: 69 Year
  Sex: Female

DRUGS (4)
  1. COTAZYM [Suspect]
     Active Substance: PANCRELIPASE
     Dosage: DOSE TEXT: E.C.S.8 / WITH LUNCH, CONTINUING: YES
     Route: 048
     Dates: start: 200711
  2. COTAZYM [Suspect]
     Active Substance: PANCRELIPASE
     Indication: PANCREATITIS CHRONIC
     Dosage: DOSE TEXT: E.C.S.20 / WITH BREAKFAST, CONTINUING: YES
     Route: 048
     Dates: start: 200711
  3. COTAZYM [Suspect]
     Active Substance: PANCRELIPASE
     Dosage: DOSE TEXT: E.C.S. 4 / WITH SNACK, CONTINUING: YES
     Route: 048
     Dates: start: 200711
  4. COTAZYM [Suspect]
     Active Substance: PANCRELIPASE
     Dosage: 20 AND 8, DEPENDING ON THE SIZE OF HER MEAL
     Route: 048

REACTIONS (4)
  - Discomfort [Not Recovered/Not Resolved]
  - Nephrolithiasis [Unknown]
  - Nodule [Unknown]
  - Flatulence [Not Recovered/Not Resolved]

NARRATIVE: CASE EVENT DATE: 201708
